FAERS Safety Report 19102992 (Version 4)
Quarter: 2021Q2

REPORT INFORMATION
  Report Type: Report from Study
  Country: US (occurrence: US)
  Receive Date: 20210407
  Receipt Date: 20210628
  Transmission Date: 20210717
  Serious: Yes (Other)
  Sender: FDA-Public Use
  Company Number: US-GLAXOSMITHKLINE-US2021AMR001930

PATIENT
  Age: 61 Year
  Sex: Male

DRUGS (2)
  1. BELANTAMAB MAFODOTIN. [Suspect]
     Active Substance: BELANTAMAB MAFODOTIN
     Indication: PLASMA CELL MYELOMA
     Dosage: UNK
     Dates: start: 20200901
  2. BELANTAMAB MAFODOTIN. [Suspect]
     Active Substance: BELANTAMAB MAFODOTIN
     Dosage: UNK
     Dates: start: 202010

REACTIONS (5)
  - Corneal cyst [Unknown]
  - Cataract operation [Unknown]
  - Keratopathy [Recovered/Resolved]
  - Vision blurred [Unknown]
  - Visual acuity reduced [Unknown]

NARRATIVE: CASE EVENT DATE: 20201029
